FAERS Safety Report 12790712 (Version 14)
Quarter: 2018Q1

REPORT INFORMATION
  Report Type: Report from Study
  Country: US (occurrence: US)
  Receive Date: 20160929
  Receipt Date: 20180315
  Transmission Date: 20180508
  Serious: Yes (Other)
  Sender: FDA-Public Use
  Company Number: PHEH2016US024320

PATIENT
  Age: 51 Year
  Sex: Female

DRUGS (4)
  1. COSENTYX [Suspect]
     Active Substance: SECUKINUMAB
     Indication: PSORIASIS
     Dosage: 2 DF, QMO
     Route: 058
     Dates: start: 20160602
  2. XANAX [Concomitant]
     Active Substance: ALPRAZOLAM
     Indication: ANXIETY
     Route: 065
  3. AMBIEN [Concomitant]
     Active Substance: ZOLPIDEM TARTRATE
     Indication: PRODUCT USED FOR UNKNOWN INDICATION
     Route: 065
  4. VICODIN [Concomitant]
     Active Substance: ACETAMINOPHEN\HYDROCODONE BITARTRATE
     Indication: PAIN
     Route: 065

REACTIONS (18)
  - Psoriasis [Unknown]
  - Spina bifida [Unknown]
  - Skin disorder [Unknown]
  - Arthritis [Recovered/Resolved]
  - Injection site bruising [Unknown]
  - Device issue [Unknown]
  - Arthralgia [Recovered/Resolved]
  - Device leakage [Unknown]
  - Fall [Unknown]
  - Skin irritation [Unknown]
  - Arthritis [Unknown]
  - Muscular weakness [Unknown]
  - Skin fissures [Unknown]
  - Intervertebral disc protrusion [Unknown]
  - Back pain [Unknown]
  - Anxiety [Unknown]
  - Skin exfoliation [Unknown]
  - Rash [Recovered/Resolved]

NARRATIVE: CASE EVENT DATE: 20160721
